FAERS Safety Report 25877221 (Version 1)
Quarter: 2025Q4

REPORT INFORMATION
  Report Type: Spontaneous
  Country: CA (occurrence: CA)
  Receive Date: 20251003
  Receipt Date: 20251003
  Transmission Date: 20260119
  Serious: Yes (Other)
  Sender: BAYER HEALTHCARE PHARMACEUTICALS INC.
  Company Number: CA-BAYER-2025A129812

PATIENT

DRUGS (1)
  1. CIPROFLOXACIN [Suspect]
     Active Substance: CIPROFLOXACIN
     Indication: Urinary tract infection

REACTIONS (7)
  - Feeling hot [None]
  - Abdominal pain upper [None]
  - Paraesthesia [None]
  - Throat irritation [None]
  - Sleep disorder [None]
  - Productive cough [None]
  - Pain [None]
